FAERS Safety Report 9555758 (Version 1)
Quarter: 2013Q3

REPORT INFORMATION
  Report Type: Spontaneous
  Country: US (occurrence: None)
  Receive Date: 20130724
  Receipt Date: 20130724
  Transmission Date: 20140515
  Serious: No
  Sender: FDA-Public Use
  Company Number: PHEH2013US006310

PATIENT
  Age: 50 Year
  Sex: Female

DRUGS (5)
  1. GILENYA (FINGOLIMOD) CAPSULE, 0.5MG [Suspect]
     Indication: MULTIPLE SCLEROSIS
     Route: 048
     Dates: start: 201303
  2. XANAX (ALPRAZOLAM) [Concomitant]
  3. AMBIEN (ZOLPIDEM TARTRATE) [Concomitant]
  4. PROPRANOLOL (PROPRANOLOL) [Concomitant]
  5. BUSPIRONE HYDROCHLORIDE (BUSPIRONE HYDROCHLORIDE) [Concomitant]

REACTIONS (1)
  - Anxiety [None]
